FAERS Safety Report 6561049-6 (Version None)
Quarter: 2010Q1

REPORT INFORMATION
  Report Type: 
  Country: None (occurrence: None)
  Receive Date: 20100130
  Receipt Date: 20091006
  Transmission Date: 20100710
  Serious: No
  Sender: FDA-Public Use
  Company Number: US-ABBOTT-09P-163-0601315-00

PATIENT
  Sex: Male
  Weight: 84.898 kg

DRUGS (2)
  1. HUMIRA [Suspect]
     Indication: RHEUMATOID ARTHRITIS
     Dates: start: 20090901
  2. HYDROCODONE [Concomitant]
     Indication: PAIN

REACTIONS (3)
  - FATIGUE [None]
  - INCORRECT DOSE ADMINISTERED [None]
  - PAIN [None]
